FAERS Safety Report 9841229 (Version 1)
Quarter: 2014Q1

REPORT INFORMATION
  Report Type: Spontaneous
  Country: US (occurrence: None)
  Receive Date: 20140123
  Receipt Date: 20140123
  Transmission Date: 20141002
  Serious: Yes (Hospitalization)
  Sender: FDA-Public Use
  Company Number: None

PATIENT
  Age: 74 Year
  Sex: Male
  Weight: 73.6 kg

DRUGS (6)
  1. XARELTO [Suspect]
     Indication: PROPHYLAXIS
     Route: 048
     Dates: start: 20131015, end: 20131018
  2. XARELTO [Suspect]
     Indication: KNEE ARTHROPLASTY
     Route: 048
     Dates: start: 20131015, end: 20131018
  3. ZOCOR [Concomitant]
  4. ULTRAM [Concomitant]
  5. CELECOXIB [Concomitant]
  6. PROSCAR [Concomitant]

REACTIONS (2)
  - Pulmonary embolism [None]
  - Drug ineffective [None]
